FAERS Safety Report 8473076-2 (Version None)
Quarter: 2012Q2

REPORT INFORMATION
  Report Type: 
  Country: None (occurrence: None)
  Receive Date: 20120627
  Receipt Date: 20120626
  Transmission Date: 20120825
  Serious: Yes (Other)
  Sender: FDA-Public Use
  Company Number: JP-EISAI INC-E2020-10929-SPO-JP

PATIENT
  Age: 86 Year
  Sex: Female

DRUGS (7)
  1. DIOVAN [Suspect]
     Dosage: UNKNOWN
  2. ARICEPT [Suspect]
     Indication: DEMENTIA ALZHEIMER'S TYPE
     Route: 048
     Dates: start: 20120528, end: 20120614
  3. DISOPYRAMIDE PHOSPHATE [Suspect]
     Indication: ARRHYTHMIA
     Dosage: UNKNOWN
     Route: 048
  4. ASPIRIN [Concomitant]
     Dosage: UNKNOWN
  5. ISOSORBIDE MONONITRATE [Concomitant]
     Indication: ARRHYTHMIA
     Dosage: UNKNOWN
     Route: 048
  6. WARFARIN SODIUM [Concomitant]
     Dosage: UNKNOWN
  7. LANSOPRAZOLE [Concomitant]
     Dosage: UNKNOWN

REACTIONS (3)
  - NAUSEA [None]
  - BLOOD PRESSURE DECREASED [None]
  - ELECTROCARDIOGRAM QT PROLONGED [None]
